FAERS Safety Report 13547223 (Version 3)
Quarter: 2017Q3

REPORT INFORMATION
  Report Type: Spontaneous
  Country: GB (occurrence: GB)
  Receive Date: 20170515
  Receipt Date: 20170901
  Transmission Date: 20171127
  Serious: Yes (Disabling, Other)
  Sender: FDA-Public Use
  Company Number: GB-PFIZER INC-2017209543

PATIENT
  Age: 53 Year
  Sex: Male

DRUGS (1)
  1. VIAGRA [Suspect]
     Active Substance: SILDENAFIL CITRATE
     Dosage: UNK (MAXIMAL INTAKE HAD ONLY BEEN 100 MG WEEKLY)
     Dates: start: 2015

REACTIONS (2)
  - Maculopathy [Unknown]
  - Sudden visual loss [Not Recovered/Not Resolved]

NARRATIVE: CASE EVENT DATE: 20160509
